FAERS Safety Report 10566202 (Version 1)
Quarter: 2014Q4

REPORT INFORMATION
  Report Type: Spontaneous
  Country: CA (occurrence: CA)
  Receive Date: 20141105
  Receipt Date: 20141105
  Transmission Date: 20150529
  Serious: Yes (Death, Hospitalization)
  Sender: FDA-Public Use
  Company Number: CA-BAXTER-2014BAX064765

PATIENT
  Age: 51 Year
  Sex: Male

DRUGS (4)
  1. EXTRANEAL [Suspect]
     Active Substance: CALCIUM CHLORIDE\ICODEXTRIN\MAGNESIUM CHLORIDE\SODIUM CHLORIDE\SODIUM LACTATE
     Indication: PERITONEAL DIALYSIS
  2. DIANEAL W/ DEXTROSE 2.5% [Suspect]
     Active Substance: CALCIUM CHLORIDE\DEXTROSE\MAGNESIUM CHLORIDE\SODIUM CHLORIDE\SODIUM LACTATE
     Indication: DIABETIC END STAGE RENAL DISEASE
     Dosage: 2 BAGS
     Route: 033
  3. DIANEAL W/ DEXTROSE 2.5% [Suspect]
     Active Substance: CALCIUM CHLORIDE\DEXTROSE\MAGNESIUM CHLORIDE\SODIUM CHLORIDE\SODIUM LACTATE
     Indication: PERITONEAL DIALYSIS
  4. EXTRANEAL [Suspect]
     Active Substance: CALCIUM CHLORIDE\ICODEXTRIN\MAGNESIUM CHLORIDE\SODIUM CHLORIDE\SODIUM LACTATE
     Indication: DIABETIC END STAGE RENAL DISEASE
     Dosage: 1 BAG
     Route: 033

REACTIONS (6)
  - Influenza [Unknown]
  - Myocardial infarction [Fatal]
  - Brain injury [Fatal]
  - Cardiac disorder [Unknown]
  - Pneumonia [Unknown]
  - Disease complication [Unknown]

NARRATIVE: CASE EVENT DATE: 20141024
